FAERS Safety Report 5940550-X (Version None)
Quarter: 2008Q4

REPORT INFORMATION
  Report Type: 
  Country: None (occurrence: None)
  Receive Date: 20081104
  Receipt Date: 20081028
  Transmission Date: 20090506
  Serious: Yes (Hospitalization, Other)
  Sender: FDA-Public Use
  Company Number: US-MERCK-0708USA02040

PATIENT
  Age: 52 Year
  Sex: Female

DRUGS (5)
  1. FOSAMAX [Suspect]
     Indication: OSTEOPOROSIS
     Route: 048
     Dates: start: 19980327, end: 20020101
  2. FOSAMAX [Suspect]
     Route: 048
     Dates: start: 20020101, end: 20041216
  3. CORTICOSTEROIDS (UNSPECIFIED) [Concomitant]
     Route: 065
     Dates: start: 19800101, end: 20070101
  4. HORMONES (UNSPECIFIED) [Concomitant]
     Route: 065
     Dates: start: 19700101, end: 20000101
  5. [THERAPY UNSPECIFIED] [Concomitant]
     Indication: RHEUMATOID ARTHRITIS
     Route: 065
     Dates: start: 19860101, end: 20070101

REACTIONS (23)
  - ANXIETY [None]
  - BACK DISORDER [None]
  - BACK PAIN [None]
  - BURSITIS [None]
  - DEPRESSION [None]
  - DIARRHOEA [None]
  - FALL [None]
  - FIBULA FRACTURE [None]
  - GASTROINTESTINAL DISORDER [None]
  - ISCHAEMIA [None]
  - NEUROPATHY PERIPHERAL [None]
  - OSTEOMYELITIS [None]
  - OSTEONECROSIS [None]
  - RHEUMATOID ARTHRITIS [None]
  - SIALOADENITIS [None]
  - SPINAL COMPRESSION FRACTURE [None]
  - SPINAL CORD DISORDER [None]
  - SPINAL DISORDER [None]
  - STRESS FRACTURE [None]
  - TEMPOROMANDIBULAR JOINT SYNDROME [None]
  - THROMBOCYTOPENIA [None]
  - TIBIA FRACTURE [None]
  - VULVOVAGINAL DRYNESS [None]
